FAERS Safety Report 10101232 (Version 2)
Quarter: 2014Q2

REPORT INFORMATION
  Report Type: Spontaneous
  Country: US (occurrence: None)
  Receive Date: 20140422
  Receipt Date: 20140429
  Transmission Date: 20141212
  Serious: Yes (Death, Life-Threatening, Hospitalization)
  Sender: FDA-Public Use
  Company Number: 2298234

PATIENT
  Age: 68 Year
  Sex: Male

DRUGS (26)
  1. GEMCITABINE [Suspect]
     Indication: METASTATIC CARCINOMA OF THE BLADDER
     Dosage: 1000 MG/M2 MILLIGRAM(S)/SQ. METER (CYCLICAL), INTRAVENOUS DRIP
     Route: 041
     Dates: start: 20110816, end: 20111011
  2. ERIBULIN [Suspect]
     Indication: METASTATIC CARCINOMA OF THE BLADDER
     Dosage: 1 MG/M2 MILLIGRAM(S)/SQ. METER (CYCLICAL) INTRAVENOUS (NOT OTHERWISE SPECIFIED)
     Route: 042
     Dates: start: 20110816, end: 20111011
  3. CISPLATIN [Suspect]
     Indication: METASTATIC CARCINOMA OF THE BLADDER
     Dosage: 70 MG/M2 MILLIGRAM(S)/SQ. METER (CYCLICAL) INTRAVENOS DRIP
     Route: 041
     Dates: start: 20110816, end: 20111011
  4. LEVOFLOXACIN [Concomitant]
  5. DENOSUMAB [Concomitant]
  6. MULTIVITAMIN /00097801/ [Concomitant]
  7. SIMVASTATIN [Concomitant]
  8. OXYCODONE [Concomitant]
  9. HYDROMORPHONE [Concomitant]
  10. MOUTH WASH [Concomitant]
  11. IBUPROFEN [Concomitant]
  12. ZOLPIDEM TARTRATE [Concomitant]
  13. SENNOSIDE A+B [Concomitant]
  14. PANTOPRAZOLE SODIUM [Concomitant]
  15. FUROSEMIDE [Concomitant]
  16. SODIUM CHLORIDE [Concomitant]
  17. ONDANSETRON [Concomitant]
  18. METOCLOPRAMIDE [Concomitant]
  19. FILGRASTIM [Concomitant]
  20. MAGNESIUM SULFATE [Concomitant]
  21. MANNITOL [Concomitant]
  22. POTASSIUM CHLORIDE [Concomitant]
  23. DEXAMETHASONE [Concomitant]
  24. DIPHENHYDRAMINE [Concomitant]
  25. APREPITANT [Concomitant]
  26. PALONOSETRON [Concomitant]

REACTIONS (27)
  - Intestinal obstruction [None]
  - Bacteraemia [None]
  - Neutropenia [None]
  - Mucosal inflammation [None]
  - Constipation [None]
  - Gastrooesophageal reflux disease [None]
  - Nausea [None]
  - Arthralgia [None]
  - Musculoskeletal pain [None]
  - Insomnia [None]
  - Ileus [None]
  - Intestinal perforation [None]
  - Sepsis [None]
  - Urinary tract infection [None]
  - Enterococcus test positive [None]
  - Candida test positive [None]
  - Escherichia test positive [None]
  - Bacterial test positive [None]
  - Clostridium test positive [None]
  - Breath sounds abnormal [None]
  - Haemoglobin decreased [None]
  - Blood creatinine increased [None]
  - Abdominal hernia [None]
  - Thrombocytopenia [None]
  - Cardiac failure congestive [None]
  - Pancreatic mass [None]
  - Staphylococcus test positive [None]
